FAERS Safety Report 9460781 (Version 1)
Quarter: 2013Q3

REPORT INFORMATION
  Report Type: Report from Study
  Country: HU (occurrence: HU)
  Receive Date: 20130815
  Receipt Date: 20130815
  Transmission Date: 20140515
  Serious: Yes (Hospitalization)
  Sender: FDA-Public Use
  Company Number: HU-GLAXOSMITHKLINE-B0914636A

PATIENT
  Age: 76 Year
  Sex: Male

DRUGS (2)
  1. SERETIDE DISKUS [Suspect]
     Indication: EMPHYSEMA
     Dosage: 1PUFF PER DAY
     Route: 055
  2. SPIRIVA [Concomitant]
     Dosage: 18MG PER DAY
     Route: 065

REACTIONS (3)
  - Tooth extraction [Recovered/Resolved]
  - Pharyngitis [Recovered/Resolved]
  - Gingivitis [Recovered/Resolved]
